FAERS Safety Report 19436166 (Version 2)
Quarter: 2021Q3

REPORT INFORMATION
  Report Type: Spontaneous
  Country: CA (occurrence: CA)
  Receive Date: 20210618
  Receipt Date: 20210803
  Transmission Date: 20211014
  Serious: Yes (Other)
  Sender: FDA-Public Use
  Company Number: CA-SUN PHARMACEUTICAL INDUSTRIES LTD-2021R1-300395

PATIENT
  Age: 35 Year
  Sex: Female

DRUGS (8)
  1. MORPHINE [Suspect]
     Active Substance: MORPHINE
     Dosage: 150 MG, EVERY 4 HOURS
     Route: 048
  2. METHADONE [Suspect]
     Active Substance: METHADONE HYDROCHLORIDE
     Indication: DRUG USE DISORDER
     Dosage: 140 MILLIGRAM, BID
     Route: 048
     Dates: start: 20190306, end: 20190421
  3. MORPHINE [Suspect]
     Active Substance: MORPHINE
     Indication: DRUG USE DISORDER
     Dosage: 600 MILLIGRAM, BID
     Route: 048
     Dates: start: 20190306
  4. HYDROMORPHONE [Suspect]
     Active Substance: HYDROMORPHONE
     Indication: DRUG USE DISORDER
     Dosage: UNK
     Route: 065
  5. MORPHINE [Suspect]
     Active Substance: MORPHINE
     Dosage: 700 MG , 800 MG ,UNK
     Route: 048
     Dates: start: 20190611
  6. METHADONE [Suspect]
     Active Substance: METHADONE HYDROCHLORIDE
     Dosage: 170 MILLIGRAM, BID
     Route: 048
  7. MORPHINE [Suspect]
     Active Substance: MORPHINE
     Indication: PAIN
     Dosage: 1280 MILLIGRAM, DAILY
     Route: 048
     Dates: start: 20190517
  8. MORPHINE [Suspect]
     Active Substance: MORPHINE
     Dosage: 1490 MG , 1440 MG ,UNK
     Route: 048
     Dates: start: 20190808

REACTIONS (3)
  - Exposure during pregnancy [Unknown]
  - Constipation [Not Recovered/Not Resolved]
  - Drug tolerance increased [Unknown]
